FAERS Safety Report 8238968-8 (Version None)
Quarter: 2012Q1

REPORT INFORMATION
  Report Type: 
  Country: None (occurrence: None)
  Receive Date: 20120327
  Receipt Date: 20120323
  Transmission Date: 20120608
  Serious: Yes (Hospitalization, Other)
  Sender: FDA-Public Use
  Company Number: PHHY2012BR025262

PATIENT
  Sex: Male
  Weight: 100 kg

DRUGS (4)
  1. EXELON [Suspect]
     Dosage: 3 MG A DAY
     Route: 048
  2. MEMANTINE HYDROCHLORIDE [Concomitant]
  3. CITALOPRAM HYDROBROMIDE [Concomitant]
  4. EXELON [Suspect]
     Indication: DEMENTIA ALZHEIMER'S TYPE
     Dosage: 1.5 MG A DAY
     Route: 048
     Dates: start: 20110101

REACTIONS (5)
  - AGITATION [None]
  - ABDOMINAL DISTENSION [None]
  - HYPERTENSION [None]
  - FALL [None]
  - DRUG INTOLERANCE [None]
